FAERS Safety Report 7390141-1 (Version None)
Quarter: 2011Q2

REPORT INFORMATION
  Report Type: 
  Country: None (occurrence: None)
  Receive Date: 20110401
  Receipt Date: 20110321
  Transmission Date: 20111010
  Serious: Yes (Disabling, Other)
  Sender: FDA-Public Use
  Company Number: PHHY2011FR23978

PATIENT
  Sex: Male

DRUGS (14)
  1. LYSANXIA [Concomitant]
     Route: 048
  2. ELISOR [Concomitant]
     Route: 048
  3. FOLINIC ACID [Concomitant]
     Dosage: UNK
     Route: 042
     Dates: start: 20090601, end: 20090801
  4. HYPERIUM [Concomitant]
     Dosage: 1 MG, UNK
     Route: 048
  5. KARDEGIC [Concomitant]
     Dosage: 160 MG, QD
     Route: 048
  6. FLUOROURACIL [Concomitant]
     Dosage: UNK
     Route: 042
     Dates: start: 20090501, end: 20090801
  7. CELLCEPT [Suspect]
     Indication: HEART TRANSPLANT
     Dosage: 750 MG, BID
     Route: 048
  8. NEORAL [Suspect]
     Indication: HEART TRANSPLANT
     Dosage: 30 MG, BID
  9. NEXIUM [Concomitant]
     Route: 048
  10. IRINOTECAN [Concomitant]
     Dosage: UNK
     Route: 042
     Dates: start: 20090501, end: 20090801
  11. LASIX [Concomitant]
     Dosage: 40 MG, QD
  12. CERTICAN [Suspect]
     Indication: HEART TRANSPLANT
     Dosage: 0.75 MG, BID
     Dates: start: 20090601, end: 20110117
  13. CALTRATE [Concomitant]
     Route: 048
  14. DEPAMIDE [Concomitant]

REACTIONS (4)
  - WEIGHT INCREASED [None]
  - LUNG DISORDER [None]
  - LYMPHOEDEMA [None]
  - CYTOMEGALOVIRUS INFECTION [None]
